FAERS Safety Report 10079396 (Version 1)
Quarter: 2014Q2

REPORT INFORMATION
  Report Type: Spontaneous
  Country: US (occurrence: None)
  Receive Date: 20140414
  Receipt Date: 20140414
  Transmission Date: 20141212
  Serious: Yes (Disabling)
  Sender: FDA-Public Use
  Company Number: None

PATIENT
  Age: 31 Year
  Sex: Male
  Weight: 116.12 kg

DRUGS (1)
  1. GABAPENTIN [Suspect]
     Indication: SCIATICA
     Dosage: FIVE TIMES A DAY
     Route: 048
     Dates: start: 20040415, end: 20050701

REACTIONS (8)
  - Blood thyroid stimulating hormone increased [None]
  - Blood cholesterol increased [None]
  - Weight increased [None]
  - Depression [None]
  - Alopecia [None]
  - Onychoclasis [None]
  - Arthralgia [None]
  - Hypothyroidism [None]
